FAERS Safety Report 6599168-0 (Version None)
Quarter: 2010Q1

REPORT INFORMATION
  Report Type: 
  Country: None (occurrence: None)
  Receive Date: 20100217
  Receipt Date: 20100204
  Transmission Date: 20100710
  Serious: Yes (Other)
  Sender: FDA-Public Use
  Company Number: 230031J10DEU

PATIENT
  Age: 40 Year
  Sex: Female
  Weight: 80 kg

DRUGS (2)
  1. REBIF [Suspect]
     Indication: MULTIPLE SCLEROSIS
     Dosage: 8.8, 3 IN 1 WEEKS, SUBCUTANEOUS
     Route: 058
     Dates: start: 20100111, end: 20100123
  2. IBUPROFEN [Concomitant]

REACTIONS (5)
  - ANAPHYLACTIC REACTION [None]
  - JOINT SWELLING [None]
  - PRURITUS [None]
  - RASH [None]
  - SWELLING FACE [None]
